FAERS Safety Report 5505632-5 (Version None)
Quarter: 2007Q4

REPORT INFORMATION
  Report Type: 
  Country: None (occurrence: None)
  Receive Date: 20071102
  Receipt Date: 20071021
  Transmission Date: 20080405
  Serious: Yes (Other)
  Sender: FDA-Public Use
  Company Number: US-PFIZER INC-2007089352

PATIENT
  Sex: Female
  Weight: 68 kg

DRUGS (11)
  1. CHANTIX [Suspect]
     Indication: SMOKING CESSATION THERAPY
  2. FLEXERIL [Suspect]
     Indication: MUSCLE RELAXANT THERAPY
     Dosage: TEXT:10MG
     Dates: start: 20070922, end: 20071011
  3. CLONAZEPAM [Suspect]
  4. PAXIL [Suspect]
  5. ETODOLAC [Suspect]
     Indication: INFLAMMATION
     Dates: start: 20071002
  6. LORTAB [Suspect]
     Indication: PAIN
  7. SEROQUEL [Concomitant]
  8. ALBUTEROL [Concomitant]
     Route: 055
  9. MONTELUKAST SODIUM [Concomitant]
  10. FORADIL [Concomitant]
  11. MULTIVITAMINS AND IRON [Concomitant]

REACTIONS (26)
  - AGITATION [None]
  - BRUXISM [None]
  - COUGH [None]
  - CRYING [None]
  - DELUSIONAL PERCEPTION [None]
  - DIARRHOEA [None]
  - DIZZINESS [None]
  - DYSPNOEA [None]
  - EMOTIONAL DISORDER [None]
  - EUPHORIC MOOD [None]
  - FAECAL INCONTINENCE [None]
  - FATIGUE [None]
  - FLATULENCE [None]
  - HALLUCINATION, VISUAL [None]
  - HEADACHE [None]
  - INTERVERTEBRAL DISC DEGENERATION [None]
  - MALAISE [None]
  - MEMORY IMPAIRMENT [None]
  - NAUSEA [None]
  - PARAESTHESIA [None]
  - PRESYNCOPE [None]
  - ROAD TRAFFIC ACCIDENT [None]
  - SPINAL COLUMN STENOSIS [None]
  - SUICIDAL IDEATION [None]
  - THROAT TIGHTNESS [None]
  - TINNITUS [None]
